FAERS Safety Report 17712057 (Version 2)
Quarter: 2021Q2

REPORT INFORMATION
  Report Type: Spontaneous
  Country: US (occurrence: US)
  Receive Date: 20200427
  Receipt Date: 20210603
  Transmission Date: 20210716
  Serious: Yes (Other)
  Sender: FDA-Public Use
  Company Number: US-ASTRAZENECA-2020SE55310

PATIENT
  Age: 54 Year
  Sex: Female
  Weight: 86.2 kg

DRUGS (64)
  1. ATENOLOL. [Concomitant]
     Active Substance: ATENOLOL
  2. METHYLPREDNISOLONE. [Concomitant]
     Active Substance: METHYLPREDNISOLONE
  3. MIRVASO [Concomitant]
     Active Substance: BRIMONIDINE TARTRATE
  4. DYMISTA [Concomitant]
     Active Substance: AZELASTINE HYDROCHLORIDE\FLUTICASONE PROPIONATE
  5. METROGEL [Concomitant]
     Active Substance: METRONIDAZOLE
  6. HUMIRA [Concomitant]
     Active Substance: ADALIMUMAB
  7. DEMEROL [Concomitant]
     Active Substance: MEPERIDINE HYDROCHLORIDE
  8. VERSED [Concomitant]
     Active Substance: MIDAZOLAM HYDROCHLORIDE
  9. CODEINE [Concomitant]
     Active Substance: CODEINE
  10. FENTANYL. [Concomitant]
     Active Substance: FENTANYL
  11. PRILOSEC [Suspect]
     Active Substance: OMEPRAZOLE MAGNESIUM
     Indication: DYSPEPSIA
     Dosage: 20?40MG DAILY
     Route: 048
     Dates: start: 1989, end: 2014
  12. PREVACID [Suspect]
     Active Substance: LANSOPRAZOLE
     Indication: DYSPEPSIA
     Dosage: GENERIC
     Route: 065
     Dates: end: 2017
  13. GLYCOPYRROLATE. [Concomitant]
     Active Substance: GLYCOPYRROLATE
  14. FLUTICASONE. [Concomitant]
     Active Substance: FLUTICASONE
  15. NEXIUM [Suspect]
     Active Substance: ESOMEPRAZOLE MAGNESIUM
     Indication: DYSPEPSIA
     Route: 048
     Dates: start: 2001, end: 2014
  16. PANTOPRAZOLE [Suspect]
     Active Substance: PANTOPRAZOLE
     Indication: DYSPEPSIA
     Dosage: GENERIC
     Route: 065
     Dates: end: 2016
  17. HYDROCHLOROTHIAZIDE. [Concomitant]
     Active Substance: HYDROCHLOROTHIAZIDE
     Indication: OEDEMA
  18. TYLENOL [Concomitant]
     Active Substance: ACETAMINOPHEN
     Indication: PAIN
  19. TUMS [Concomitant]
     Active Substance: CALCIUM CARBONATE
  20. SHINGRIX [Concomitant]
     Active Substance: RECOMBINANT VARICELLA ZOSTER VIRUS (VZV) GLYCOPROTEIN E
  21. OXYCODONE AND ACETAMINOPHEN [Concomitant]
     Active Substance: ACETAMINOPHEN\OXYCODONE HYDROCHLORIDE
  22. TERBINAFINE. [Concomitant]
     Active Substance: TERBINAFINE
  23. BENZONATATE. [Concomitant]
     Active Substance: BENZONATATE
  24. METHOCARBAMOL. [Concomitant]
     Active Substance: METHOCARBAMOL
  25. SMZ/TMO [Concomitant]
  26. SKELAXIN [Concomitant]
     Active Substance: METAXALONE
  27. SINGULAIR [Concomitant]
     Active Substance: MONTELUKAST SODIUM
  28. VENLAFAXINE [Concomitant]
     Active Substance: VENLAFAXINE HYDROCHLORIDE
  29. METOCLOPRAMIDE. [Concomitant]
     Active Substance: METOCLOPRAMIDE
  30. GAVILYTE G [Concomitant]
     Active Substance: POLYETHYLENE GLYCOL 3350\POTASSIUM CHLORIDE\SODIUM BICARBONATE\SODIUM CHLORIDE\SODIUM SULFATE
  31. AMOX?CLAV [Concomitant]
     Active Substance: AMOXICILLIN\CLAVULANATE POTASSIUM
  32. TIZANIDINE. [Concomitant]
     Active Substance: TIZANIDINE
  33. BENEFIBER [Concomitant]
     Active Substance: STARCH, WHEAT
  34. FLOMAX [Concomitant]
     Active Substance: TAMSULOSIN HYDROCHLORIDE
  35. NEXIUM [Suspect]
     Active Substance: ESOMEPRAZOLE MAGNESIUM
     Indication: DYSPEPSIA
     Route: 048
     Dates: start: 198910, end: 201412
  36. ATORVASTATIN [Concomitant]
     Active Substance: ATORVASTATIN
     Indication: BLOOD CHOLESTEROL INCREASED
  37. AZITHROMYCIN ANHYDROUS. [Concomitant]
     Active Substance: AZITHROMYCIN ANHYDROUS
     Indication: INFECTION
  38. CIPROFLOXACIN. [Concomitant]
     Active Substance: CIPROFLOXACIN
     Indication: INFECTION
  39. NAPROXEN. [Concomitant]
     Active Substance: NAPROXEN
     Indication: PAIN
  40. XIFAXAN [Concomitant]
     Active Substance: RIFAXIMIN
  41. LEFLUNOMIDE. [Concomitant]
     Active Substance: LEFLUNOMIDE
  42. FOLIC ACID. [Concomitant]
     Active Substance: FOLIC ACID
  43. AMERGE [Concomitant]
     Active Substance: NARATRIPTAN HYDROCHLORIDE
  44. PRILOSEC [Suspect]
     Active Substance: OMEPRAZOLE MAGNESIUM
     Indication: DYSPEPSIA
     Route: 048
     Dates: start: 198910, end: 201412
  45. LISINOPRIL. [Concomitant]
     Active Substance: LISINOPRIL
     Indication: HYPERTENSION
  46. PREDNISONE. [Concomitant]
     Active Substance: PREDNISONE
  47. FEMHRT [Concomitant]
     Active Substance: ETHINYL ESTRADIOL\NORETHINDRONE ACETATE
  48. NITROFURANTOIN. [Concomitant]
     Active Substance: NITROFURANTOIN
  49. DOXYCYCLINE HYCLATE. [Concomitant]
     Active Substance: DOXYCYCLINE HYCLATE
  50. AVELOX [Concomitant]
     Active Substance: MOXIFLOXACIN HYDROCHLORIDE
  51. ACTONEL [Concomitant]
     Active Substance: RISEDRONATE SODIUM
  52. NAPROSYN [Concomitant]
     Active Substance: NAPROXEN
  53. SIMVASTATIN. [Concomitant]
     Active Substance: SIMVASTATIN
  54. PREVACID [Suspect]
     Active Substance: LANSOPRAZOLE
     Indication: DYSPEPSIA
     Route: 065
     Dates: start: 2013, end: 2014
  55. LOSARTAN. [Concomitant]
     Active Substance: LOSARTAN
     Indication: RENAL DISORDER
  56. CRESTOR [Concomitant]
     Active Substance: ROSUVASTATIN CALCIUM
  57. SALINE [Concomitant]
     Active Substance: SODIUM CHLORIDE
  58. ONDANSETRON [Concomitant]
     Active Substance: ONDANSETRON
  59. BUPROPION. [Concomitant]
     Active Substance: BUPROPION
  60. IPRATROPIUM [Concomitant]
     Active Substance: IPRATROPIUM
  61. SERTRALINE [Concomitant]
     Active Substance: SERTRALINE HYDROCHLORIDE
  62. HYDROCORTISONE. [Concomitant]
     Active Substance: HYDROCORTISONE
  63. DEXTROSE. [Concomitant]
     Active Substance: DEXTROSE
  64. TRIAMCINOLONE [Concomitant]
     Active Substance: TRIAMCINOLONE

REACTIONS (3)
  - Chronic kidney disease [Not Recovered/Not Resolved]
  - Renal failure [Unknown]
  - Hyperparathyroidism secondary [Unknown]

NARRATIVE: CASE EVENT DATE: 2010
